FAERS Safety Report 7477182-0 (Version None)
Quarter: 2011Q2

REPORT INFORMATION
  Report Type: 
  Country: None (occurrence: None)
  Receive Date: 20110512
  Receipt Date: 20110228
  Transmission Date: 20111010
  Serious: Yes (Other)
  Sender: FDA-Public Use
  Company Number: US-NOVEN-11US001886

PATIENT
  Sex: Male
  Weight: 36.281 kg

DRUGS (3)
  1. MELATONIN [Concomitant]
     Indication: SLEEP DISORDER
     Dosage: 3 MG, UNK
     Route: 048
     Dates: start: 20090101
  2. DAYTRANA [Suspect]
     Dosage: UNK MG, QD
     Route: 062
     Dates: start: 20090101
  3. DAYTRANA [Suspect]
     Indication: ATTENTION DEFICIT/HYPERACTIVITY DISORDER
     Dosage: 20 MG, QD
     Route: 062
     Dates: start: 20110210

REACTIONS (6)
  - DRUG PRESCRIBING ERROR [None]
  - CONVULSION [None]
  - APPLICATION SITE ERYTHEMA [None]
  - PRODUCT QUALITY ISSUE [None]
  - DRUG ADMINISTERED AT INAPPROPRIATE SITE [None]
  - DRUG ADMINISTRATION ERROR [None]
